FAERS Safety Report 10074162 (Version 3)
Quarter: 2014Q2

REPORT INFORMATION
  Report Type: Spontaneous
  Country: US (occurrence: US)
  Receive Date: 20140411
  Receipt Date: 20140507
  Transmission Date: 20141212
  Serious: Yes (Hospitalization)
  Sender: FDA-Public Use
  Company Number: US-LUNDBECK-DKLU1098892

PATIENT
  Sex: Female

DRUGS (3)
  1. SABRIL (FOR ORAL SOLUTION) [Suspect]
     Indication: INFANTILE SPASMS
     Route: 048
     Dates: start: 20140313
  2. SABRIL (FOR ORAL SOLUTION) [Suspect]
     Route: 048
     Dates: start: 20140413
  3. SABRIL (FOR ORAL SOLUTION) [Suspect]
     Dosage: DECREASE BY 50 MG PER WEEK UNTIL DISCONTINUED
     Route: 048
     Dates: start: 201404

REACTIONS (1)
  - Infantile spasms [Recovering/Resolving]
